FAERS Safety Report 7010011-8 (Version None)
Quarter: 2010Q3

REPORT INFORMATION
  Report Type: 
  Country: None (occurrence: None)
  Receive Date: 20100921
  Receipt Date: 20100902
  Transmission Date: 20110219
  Serious: Yes (Other)
  Sender: FDA-Public Use
  Company Number: ABLIT-10-0478

PATIENT
  Age: 65 Year
  Sex: Female

DRUGS (2)
  1. ABRAXANE [Suspect]
     Indication: BREAST CANCER METASTATIC
  2. BEVACIZUMAB (BEVACIZUMAB) [Suspect]
     Indication: BREAST CANCER METASTATIC

REACTIONS (5)
  - FLUID OVERLOAD [None]
  - MACULAR OEDEMA [None]
  - PROTEINURIA [None]
  - RENAL IMPAIRMENT [None]
  - VISUAL ACUITY REDUCED [None]
